FAERS Safety Report 11595092 (Version 2)
Quarter: 2016Q1

REPORT INFORMATION
  Report Type: Spontaneous
  Country: US (occurrence: US)
  Receive Date: 20151006
  Receipt Date: 20160104
  Transmission Date: 20160525
  Serious: No
  Sender: FDA-Public Use
  Company Number: US-009507513-1509USA009184

PATIENT
  Age: 59 Year
  Sex: Male
  Weight: 117.46 kg

DRUGS (1)
  1. BELSOMRA [Suspect]
     Active Substance: SUVOREXANT
     Indication: INSOMNIA
     Dosage: TOTAL DAILY DOSE 10 MG
     Route: 048
     Dates: start: 20150913, end: 20150914

REACTIONS (1)
  - Hypoaesthesia [Recovered/Resolved]

NARRATIVE: CASE EVENT DATE: 201509
